FAERS Safety Report 16105605 (Version 1)
Quarter: 2019Q1

REPORT INFORMATION
  Report Type: Report from Study
  Country: US (occurrence: US)
  Receive Date: 20190322
  Receipt Date: 20190322
  Transmission Date: 20190418
  Serious: Yes (Hospitalization, Other)
  Sender: FDA-Public Use
  Company Number: US-JNJFOC-20190325179

PATIENT

DRUGS (4)
  1. IBRUTINIB [Suspect]
     Active Substance: IBRUTINIB
     Indication: CHRONIC LYMPHOCYTIC LEUKAEMIA REFRACTORY
     Dosage: STARTING CYCLE 2 DAY 1
     Route: 065
  2. NIVOLUMAB [Suspect]
     Active Substance: NIVOLUMAB
     Indication: RICHTER^S SYNDROME
     Dosage: 3 MG/KG IV EVERY 2 WEEKS, STARTING CYCLE 1 DAY 1 FOR A TOTAL OF 24 CYCLES
     Route: 065
  3. IBRUTINIB [Suspect]
     Active Substance: IBRUTINIB
     Indication: RICHTER^S SYNDROME
     Dosage: STARTING CYCLE 2 DAY 1
     Route: 065
  4. NIVOLUMAB [Suspect]
     Active Substance: NIVOLUMAB
     Indication: CHRONIC LYMPHOCYTIC LEUKAEMIA REFRACTORY
     Dosage: 3 MG/KG IV EVERY 2 WEEKS, STARTING CYCLE 1 DAY 1 FOR A TOTAL OF 24 CYCLES
     Route: 065

REACTIONS (5)
  - Lipase increased [Unknown]
  - Uveitis [Unknown]
  - Amylase increased [Unknown]
  - Transaminases increased [Unknown]
  - Pneumonitis [Unknown]
